FAERS Safety Report 8008556-7 (Version None)
Quarter: 2011Q4

REPORT INFORMATION
  Report Type: 
  Country: None (occurrence: None)
  Receive Date: 20111227
  Receipt Date: 20111215
  Transmission Date: 20120403
  Serious: Yes (Hospitalization, Other)
  Sender: FDA-Public Use
  Company Number: US-ASTRAZENECA-2011SE74507

PATIENT
  Age: 34 Year
  Sex: Male

DRUGS (9)
  1. TOPAMAX [Concomitant]
     Indication: ALCOHOLIC SEIZURE
  2. SEROQUEL [Suspect]
     Route: 048
     Dates: start: 20110914, end: 20110914
  3. SEROQUEL [Suspect]
     Route: 048
  4. SEROQUEL [Suspect]
     Indication: BIPOLAR DISORDER
     Route: 048
     Dates: start: 20110907, end: 20110925
  5. SEROQUEL [Suspect]
     Dosage: 400 MG PLUS 150MG WITH DINNER
     Route: 048
     Dates: start: 20111007, end: 20111107
  6. SEROQUEL [Suspect]
     Route: 048
     Dates: start: 20110907, end: 20110925
  7. AMITRIPTYLINE [Concomitant]
     Dosage: WITH 75 MG HS
     Dates: start: 20110907, end: 20111217
  8. SEROQUEL [Suspect]
     Route: 048
  9. AMITRIPTYLINE [Concomitant]
     Indication: DEPRESSION
     Dosage: WITH 25 MG BID
     Dates: start: 20110907, end: 20111217

REACTIONS (11)
  - DEPRESSION [None]
  - SLEEP DISORDER [None]
  - ATTENTION DEFICIT/HYPERACTIVITY DISORDER [None]
  - ALCOHOLIC SEIZURE [None]
  - ALCOHOLIC [None]
  - DRUG DOSE OMISSION [None]
  - HALLUCINATION, VISUAL [None]
  - RESTLESSNESS [None]
  - ASTHMA [None]
  - MEDICAL INDUCTION OF COMA [None]
  - ANXIETY [None]
